FAERS Safety Report 25488485 (Version 1)
Quarter: 2025Q2

REPORT INFORMATION
  Report Type: Spontaneous
  Country: US (occurrence: US)
  Receive Date: 20250627
  Receipt Date: 20250627
  Transmission Date: 20250716
  Serious: No
  Sender: PFIZER
  Company Number: US-PFIZER INC-202500130166

PATIENT
  Age: 59 Year
  Sex: Female

DRUGS (7)
  1. CIBINQO [Suspect]
     Active Substance: ABROCITINIB
     Dosage: 100 MG, DAILY
     Route: 048
     Dates: start: 20250512
  2. ACETYLCYSTEINE [Concomitant]
     Active Substance: ACETYLCYSTEINE
  3. LEVOTHYROXINE [Concomitant]
     Active Substance: LEVOTHYROXINE
  4. PROGESTERONE [Concomitant]
     Active Substance: PROGESTERONE
  5. DOTTI [Concomitant]
     Active Substance: ESTRADIOL
  6. LOSARTAN [Concomitant]
     Active Substance: LOSARTAN
  7. VITAMIN D NOS [Concomitant]
     Active Substance: CHOLECALCIFEROL\ERGOCALCIFEROL

REACTIONS (2)
  - Drug ineffective [Unknown]
  - Product dose omission issue [Unknown]
